FAERS Safety Report 7478459-5 (Version None)
Quarter: 2011Q2

REPORT INFORMATION
  Report Type: 
  Country: None (occurrence: None)
  Receive Date: 20110513
  Receipt Date: 20100527
  Transmission Date: 20111010
  Serious: Yes (Other)
  Sender: FDA-Public Use
  Company Number: US-PFIZER INC-2010067320

PATIENT

DRUGS (1)
  1. CELEBREX [Suspect]
     Dosage: UNK MG, UNK
     Route: 048

REACTIONS (1)
  - RENAL FAILURE [None]
